FAERS Safety Report 7424566-2 (Version None)
Quarter: 2011Q2

REPORT INFORMATION
  Report Type: 
  Country: None (occurrence: None)
  Receive Date: 20110419
  Receipt Date: 20110414
  Transmission Date: 20111010
  Serious: Yes (Hospitalization, Other)
  Sender: FDA-Public Use
  Company Number: NZ-ABBOTT-11P-118-0719279-02

PATIENT
  Sex: Male

DRUGS (13)
  1. HUMIRA [Suspect]
     Indication: CROHN'S DISEASE
     Route: 058
     Dates: start: 20091009, end: 20091009
  2. MORPHINE [Concomitant]
     Indication: ABDOMINAL PAIN
     Dosage: 10-20 MG EVERY 30 MINS.
     Dates: start: 20091030
  3. BUDESONIDE [Concomitant]
     Indication: CROHN'S DISEASE
     Dates: start: 20091027
  4. PREDNISONE [Concomitant]
     Indication: CROHN'S DISEASE
     Dates: start: 20091027, end: 20091102
  5. PREDNISONE [Concomitant]
     Dates: start: 20091102
  6. METHADONE [Concomitant]
     Indication: ABDOMINAL PAIN
     Dosage: 15-20 MG
     Dates: start: 20091027
  7. PREDNISONE [Concomitant]
     Dates: start: 20100127
  8. LACTULOSE [Concomitant]
     Indication: CONSTIPATION PROPHYLAXIS
     Dosage: 20-40 ML AS REQUIRED
     Dates: start: 20091029
  9. ENSURE [Concomitant]
     Indication: MEDICAL DIET
     Dates: start: 20091027
  10. ACETAMINOPHEN [Concomitant]
     Indication: ABDOMINAL PAIN
     Dosage: AS REQUIRED
     Dates: start: 20091027
  11. CLONIDINE [Concomitant]
     Indication: HYPERTENSION
     Route: 061
     Dates: start: 20091027
  12. HUMIRA [Suspect]
     Route: 058
  13. GABAPENTIN [Concomitant]
     Indication: ABDOMINAL PAIN
     Dates: start: 20091027

REACTIONS (3)
  - SPUTUM PURULENT [None]
  - PYREXIA [None]
  - DYSPNOEA [None]
